FAERS Safety Report 16644566 (Version 1)
Quarter: 2019Q3

REPORT INFORMATION
  Report Type: Report from Study
  Country: GB (occurrence: GB)
  Receive Date: 20190729
  Receipt Date: 20190729
  Transmission Date: 20191004
  Serious: Yes (Hospitalization, Other)
  Sender: FDA-Public Use
  Company Number: GB-MYLANLABS-2019M1069838

PATIENT
  Age: 65 Year
  Sex: Female

DRUGS (10)
  1. ADCAL D3 [Concomitant]
     Active Substance: CALCIUM CARBONATE\CHOLECALCIFEROL
     Indication: METASTASES TO BONE
     Dosage: 4 DOSAGE FORM, QD
     Route: 048
     Dates: start: 20150917, end: 201510
  2. COCODAMOL [Suspect]
     Active Substance: ACETAMINOPHEN\CODEINE PHOSPHATE
     Indication: PAIN IN EXTREMITY
     Dosage: DOSE: 30/500 MG
     Route: 048
     Dates: start: 20150917, end: 201511
  3. PERTUZUMAB. [Suspect]
     Active Substance: PERTUZUMAB
     Indication: BREAST CANCER METASTATIC
     Dosage: MAINTENANCE DOSE
     Route: 042
     Dates: start: 20150407, end: 20150706
  4. TRASTUZUMAB. [Suspect]
     Active Substance: TRASTUZUMAB
     Dosage: 210 MILLIGRAM
     Route: 042
     Dates: start: 20150814, end: 20151026
  5. PERTUZUMAB. [Suspect]
     Active Substance: PERTUZUMAB
     Dosage: LOADING DOSE
     Route: 042
     Dates: start: 20150316, end: 20150316
  6. DOCETAXEL. [Suspect]
     Active Substance: DOCETAXEL
     Indication: BREAST CANCER METASTATIC
     Dosage: 120 MILLIGRAM
     Route: 042
     Dates: start: 20150317, end: 20150407
  7. TRASTUZUMAB. [Suspect]
     Active Substance: TRASTUZUMAB
     Indication: BREAST CANCER METASTATIC
     Dosage: MAINTENANCE DOSE
     Route: 042
     Dates: start: 20150407, end: 20150706
  8. TRASTUZUMAB. [Suspect]
     Active Substance: TRASTUZUMAB
     Dosage: LOADING DOSE, 472.5 MILLIGRAM
     Route: 042
     Dates: start: 20150316, end: 20150316
  9. BIMATOPROST. [Suspect]
     Active Substance: BIMATOPROST
     Indication: GLAUCOMA
     Dosage: 1 UNK, QD
     Route: 047
     Dates: start: 201208, end: 20151206
  10. COCODAMOL [Suspect]
     Active Substance: ACETAMINOPHEN\CODEINE PHOSPHATE
     Indication: BACK PAIN
     Dosage: DOSE: 30/500 MG
     Route: 048
     Dates: start: 20151023, end: 20151023

REACTIONS (24)
  - Oropharyngeal pain [Recovered/Resolved]
  - Back pain [Recovered/Resolved with Sequelae]
  - Condition aggravated [Unknown]
  - Diarrhoea [Recovered/Resolved]
  - Pain [Unknown]
  - Fatigue [Unknown]
  - Nausea [Unknown]
  - Painful respiration [Recovered/Resolved with Sequelae]
  - Breast inflammation [Recovered/Resolved with Sequelae]
  - Mastitis [Recovered/Resolved with Sequelae]
  - Breast discharge [Not Recovered/Not Resolved]
  - Breast pain [Recovered/Resolved with Sequelae]
  - Paget^s disease of nipple [Unknown]
  - Vomiting [Recovered/Resolved]
  - Lymphoedema [Unknown]
  - Blister [Unknown]
  - Breast haemorrhage [Recovered/Resolved with Sequelae]
  - Pain in extremity [Unknown]
  - Headache [Recovered/Resolved]
  - Skin disorder [Recovered/Resolved with Sequelae]
  - Inflammatory carcinoma of the breast [Recovered/Resolved with Sequelae]
  - Pleural effusion [Recovered/Resolved with Sequelae]
  - Anaemia [Not Recovered/Not Resolved]
  - Constipation [Recovered/Resolved]

NARRATIVE: CASE EVENT DATE: 20150703
